FAERS Safety Report 6339571-7 (Version None)
Quarter: 2009Q3

REPORT INFORMATION
  Report Type: 
  Country: None (occurrence: None)
  Receive Date: 20090903
  Receipt Date: 20081001
  Transmission Date: 20100115
  Serious: Yes (Other)
  Sender: FDA-Public Use
  Company Number: US-BRISTOL-MYERS SQUIBB COMPANY-14354492

PATIENT
  Age: 40 Year
  Sex: Female
  Weight: 82 kg

DRUGS (1)
  1. STADOL [Suspect]
     Dosage: 1 DOSAGE FORM = 1 BOTTLE STARTED AT DOSE OF 2 BOTTLES A WEEK

REACTIONS (1)
  - DRUG ABUSE [None]
